FAERS Safety Report 4390178-0 (Version None)
Quarter: 2004Q3

REPORT INFORMATION
  Report Type: 
  Country: None (occurrence: None)
  Receive Date: 20040706
  Receipt Date: 20040622
  Transmission Date: 20050211
  Serious: Yes (Hospitalization)
  Sender: FDA-Public Use
  Company Number: JP-GLAXOSMITHKLINE-B0336811A

PATIENT
  Age: 25 Year
  Sex: Female
  Weight: 54 kg

DRUGS (2)
  1. IMIGRAN [Suspect]
     Indication: HEADACHE
     Route: 048
     Dates: start: 20030222
  2. METHYLERGOMETRINE MALEATE [Suspect]
     Indication: UTERINE CONTRACTIONS DURING PREGNANCY
     Route: 048
     Dates: start: 20030217

REACTIONS (4)
  - CEREBROVASCULAR DISORDER [None]
  - GRAND MAL CONVULSION [None]
  - LOSS OF CONSCIOUSNESS [None]
  - VASCULITIS CEREBRAL [None]
